FAERS Safety Report 4315051-5 (Version None)
Quarter: 2004Q1

REPORT INFORMATION
  Report Type: 
  Country: None (occurrence: None)
  Receive Date: 20040309
  Receipt Date: 20040225
  Transmission Date: 20041129
  Serious: Yes (Hospitalization)
  Sender: FDA-Public Use
  Company Number: FR_040203560

PATIENT
  Age: 63 Year
  Sex: Male

DRUGS (3)
  1. CIALIS [Suspect]
     Indication: ERECTILE DYSFUNCTION
  2. OMIX (TAMSULOSIN HYDROCHLORIDE) [Concomitant]
  3. PERMIXON (SERENOA REPENS) [Concomitant]

REACTIONS (1)
  - DERMATITIS EXFOLIATIVE [None]
